FAERS Safety Report 6279856-6 (Version None)
Quarter: 2009Q3

REPORT INFORMATION
  Report Type: 
  Country: None (occurrence: None)
  Receive Date: 20090723
  Receipt Date: 20090714
  Transmission Date: 20100115
  Serious: Yes (Hospitalization, Other)
  Sender: FDA-Public Use
  Company Number: PHHY2009MX27513

PATIENT
  Sex: Female

DRUGS (1)
  1. DIOVAN HCT [Suspect]
     Indication: HYPERTENSION
     Dosage: 80/12.5 MG PER DAY
     Route: 048
     Dates: start: 20050101, end: 20090622

REACTIONS (3)
  - ANGINA PECTORIS [None]
  - HYPERTENSIVE CRISIS [None]
  - HYPOTENSION [None]
